FAERS Safety Report 6437454-5 (Version None)
Quarter: 2009Q4

REPORT INFORMATION
  Report Type: 
  Country: None (occurrence: None)
  Receive Date: 20091112
  Receipt Date: 20091029
  Transmission Date: 20100525
  Serious: Yes (Other)
  Sender: FDA-Public Use
  Company Number: PHHY2008JP03636

PATIENT
  Sex: Male
  Weight: 51 kg

DRUGS (6)
  1. ZOMETA [Suspect]
     Indication: MULTIPLE MYELOMA
     Dosage: 4 MG, QMO
     Route: 042
     Dates: start: 20060703, end: 20070308
  2. AMOXICILLIN [Concomitant]
  3. DALACIN [Concomitant]
     Dosage: UNK
     Dates: start: 20070719
  4. MELPHALAN [Concomitant]
     Dosage: 8 MG, UNK
     Dates: start: 20060701
  5. PREDNISOLONE [Concomitant]
     Dosage: 60 MG, UNK
  6. AUGMENTIN [Concomitant]

REACTIONS (15)
  - ABSCESS MANAGEMENT [None]
  - ABSCESS ORAL [None]
  - BONE DISORDER [None]
  - EXCESSIVE GRANULATION TISSUE [None]
  - GINGIVAL ERYTHEMA [None]
  - GINGIVAL SWELLING [None]
  - INFECTION [None]
  - MOUTH ULCERATION [None]
  - ORAL DISCHARGE [None]
  - ORAL PAIN [None]
  - OSTEOMYELITIS [None]
  - OSTEONECROSIS [None]
  - PRIMARY SEQUESTRUM [None]
  - SWELLING [None]
  - TENDERNESS [None]
